FAERS Safety Report 7495753-2 (Version None)
Quarter: 2011Q2

REPORT INFORMATION
  Report Type: 
  Country: None (occurrence: None)
  Receive Date: 20110523
  Receipt Date: 20110510
  Transmission Date: 20111010
  Serious: Yes (Hospitalization)
  Sender: FDA-Public Use
  Company Number: DE-ELI_LILLY_AND_COMPANY-DE201105002770

PATIENT
  Age: 56 Year
  Sex: Male

DRUGS (16)
  1. BISOPROLOL FUMARATE [Concomitant]
     Indication: HYPERTENSION
     Dosage: 2.5 MG, BID
     Dates: start: 19800101
  2. ALLOPURINOL [Concomitant]
     Indication: HYPERURICAEMIA
     Dosage: 100 MG, QD
     Dates: start: 19900101
  3. RAMIPRIL [Concomitant]
     Indication: HYPERTENSION
     Dosage: UNK, UNKNOWN
     Dates: start: 19800101
  4. EMBOLEX [Concomitant]
     Indication: THROMBOSIS PROPHYLAXIS
     Dosage: 8000 U, QD
     Route: 058
     Dates: start: 20100602, end: 20100609
  5. FALITHROM [Concomitant]
     Indication: THROMBOSIS PROPHYLAXIS
     Dosage: 3 MG, QD
     Dates: start: 20050101, end: 20100601
  6. SIMVASTATIN [Concomitant]
     Indication: DYSLIPIDAEMIA
     Dosage: UNK
     Dates: start: 20000101, end: 20100608
  7. VOLTAREN [Concomitant]
     Indication: PAIN
     Dosage: 75 MG, QD
     Route: 048
     Dates: start: 20100620, end: 20100623
  8. METHOTREXATE [Concomitant]
     Indication: RHEUMATOID ARTHRITIS
     Dosage: 7.5 MG, QD
     Route: 048
     Dates: start: 19950101
  9. FOLSAEURE [Concomitant]
     Indication: FOLATE DEFICIENCY
     Dosage: UNK
     Route: 048
     Dates: start: 19950101
  10. MIRTAZAPIN [Concomitant]
     Indication: DEPRESSION
     Dosage: 30 MG, QD
     Route: 048
     Dates: start: 20020101
  11. METFORMIN [Concomitant]
     Indication: DIABETES MELLITUS
     Dosage: UNK, UNKNOWN
     Dates: start: 20020101, end: 20100605
  12. CYMBALTA [Suspect]
     Indication: DEPRESSION
     Dosage: 60 MG, QD
     Route: 048
     Dates: start: 20020101
  13. FRAGMIN [Concomitant]
     Indication: THROMBOSIS PROPHYLAXIS
     Dosage: 5000 U, QD
     Dates: start: 20100610, end: 20100625
  14. CELEBREX [Concomitant]
     Indication: PAIN
     Dosage: 100 MG, QD
     Route: 048
     Dates: start: 20000101
  15. DIPIDOLOR [Concomitant]
     Indication: PAIN
     Dosage: UNK
     Dates: start: 20100610, end: 20100610
  16. FLUVASTATIN [Concomitant]
     Indication: DYSLIPIDAEMIA
     Dosage: UNK
     Route: 048

REACTIONS (4)
  - HAEMATOMA [None]
  - IMPAIRED HEALING [None]
  - DRUG INTERACTION [None]
  - WOUND INFECTION STAPHYLOCOCCAL [None]
